FAERS Safety Report 7978942-X (Version None)
Quarter: 2011Q4

REPORT INFORMATION
  Report Type: 
  Country: None (occurrence: None)
  Receive Date: 20111205
  Receipt Date: 20111129
  Transmission Date: 20120403
  Serious: Yes (Hospitalization, Other)
  Sender: FDA-Public Use
  Company Number: 2011SP019413

PATIENT
  Age: 31 Year
  Sex: Female
  Weight: 68.0396 kg

DRUGS (1)
  1. NUVARING [Suspect]
     Indication: CONTRACEPTION
     Dates: start: 20060101, end: 20110509

REACTIONS (32)
  - PAPILLOMA VIRAL INFECTION [None]
  - CERVICAL DYSPLASIA [None]
  - MENSTRUAL DISORDER [None]
  - SKIN LESION [None]
  - CHEST PAIN [None]
  - URINARY TRACT INFECTION [None]
  - THROMBOSIS [None]
  - PLEURITIC PAIN [None]
  - BACK PAIN [None]
  - PSYCHOTIC DISORDER [None]
  - VAGINAL DISCHARGE [None]
  - MUSCLE SPASMS [None]
  - VOMITING [None]
  - CHILLS [None]
  - STAPHYLOCOCCAL INFECTION [None]
  - HYPERCOAGULATION [None]
  - OROPHARYNGEAL PAIN [None]
  - PANIC ATTACK [None]
  - PULMONARY EMBOLISM [None]
  - DYSURIA [None]
  - SCHIZOPHRENIA [None]
  - DEEP VEIN THROMBOSIS [None]
  - ADNEXA UTERI PAIN [None]
  - SINUS TACHYCARDIA [None]
  - HAEMOPTYSIS [None]
  - VULVAL DISORDER [None]
  - MULTIPLE INJURIES [None]
  - PHARYNGITIS [None]
  - VIRAL INFECTION [None]
  - PELVIC INFLAMMATORY DISEASE [None]
  - PELVIC VENOUS THROMBOSIS [None]
  - WEIGHT DECREASED [None]
